FAERS Safety Report 4408633-3 (Version None)
Quarter: 2004Q3

REPORT INFORMATION
  Report Type: 
  Country: None (occurrence: None)
  Receive Date: 20040723
  Receipt Date: 20040712
  Transmission Date: 20050211
  Serious: Yes (Life-Threatening, Hospitalization)
  Sender: FDA-Public Use
  Company Number: 8006633

PATIENT
  Age: 45 Year
  Sex: Male
  Weight: 75 kg

DRUGS (8)
  1. KEPPRA [Suspect]
     Indication: EPILEPSY
     Dosage: 500 MG 3/D PO
     Route: 048
     Dates: start: 20040101
  2. KEPPRA [Suspect]
     Indication: EPILEPSY
     Dosage: 2000 MG /D PO
     Route: 048
     Dates: start: 20040101, end: 20040101
  3. KEPPRA [Suspect]
     Indication: EPILEPSY
     Dosage: 750 MG /D PO
     Route: 048
     Dates: start: 20040101, end: 20040101
  4. KEPPRA [Suspect]
     Indication: EPILEPSY
     Dosage: 500 MG /D PO
     Route: 048
     Dates: start: 20040101, end: 20040101
  5. KEPPRA [Suspect]
     Indication: EPILEPSY
     Dosage: 250 MG /D PO
     Route: 048
     Dates: start: 20040101
  6. NEURONTIN [Concomitant]
  7. NEURONTIN [Concomitant]
  8. CARBAMAZEPINE [Concomitant]

REACTIONS (6)
  - AGITATION [None]
  - ANXIETY [None]
  - INSOMNIA [None]
  - PERSECUTORY DELUSION [None]
  - STATUS EPILEPTICUS [None]
  - SUICIDAL IDEATION [None]
